APPROVED DRUG PRODUCT: LO LOESTRIN FE
Active Ingredient: ETHINYL ESTRADIOL; NORETHINDRONE ACETATE
Strength: 0.01MG,0.01MG;1MG,N/A
Dosage Form/Route: TABLET;ORAL
Application: N022501 | Product #001
Applicant: ALLERGAN PHARMACEUTICALS INTERNATIONAL LTD
Approved: Oct 21, 2010 | RLD: Yes | RS: Yes | Type: RX

PATENTS:
Patent 7704984 | Expires: Feb 2, 2029